FAERS Safety Report 21763647 (Version 1)
Quarter: 2022Q4

REPORT INFORMATION
  Report Type: Report from Study
  Country: US (occurrence: US)
  Receive Date: 20221222
  Receipt Date: 20221222
  Transmission Date: 20230112
  Serious: Yes (Other)
  Sender: FDA-Public Use
  Company Number: US-ABBVIE-4245203

PATIENT
  Age: 57 Year
  Sex: Female

DRUGS (1)
  1. RINVOQ [Suspect]
     Active Substance: UPADACITINIB
     Indication: Rheumatoid arthritis
     Dosage: LAST ADMIN DATE: 2022?FORM STRENGTH: 15 MILLIGRAM
     Route: 048
     Dates: start: 202202

REACTIONS (3)
  - Spinal operation [Unknown]
  - Procedural pain [Unknown]
  - Peripheral swelling [Unknown]

NARRATIVE: CASE EVENT DATE: 20221201
